FAERS Safety Report 4706906-8 (Version None)
Quarter: 2005Q2

REPORT INFORMATION
  Report Type: 
  Country: None (occurrence: None)
  Receive Date: 20050630
  Receipt Date: 20050627
  Transmission Date: 20051028
  Serious: Yes (Hospitalization)
  Sender: FDA-Public Use
  Company Number: 05-06-1119

PATIENT
  Age: 55 Year
  Sex: Female
  Weight: 60 kg

DRUGS (21)
  1. FUROSEMIDE [Suspect]
     Indication: FLUID OVERLOAD
     Dosage: INTRAVENOUS
     Route: 042
     Dates: start: 20050531, end: 20050605
  2. RANITIDINE [Concomitant]
  3. ENOXAPARIN SODIUM [Concomitant]
  4. TAZOCIN [Concomitant]
  5. FLUCONAZOLE [Concomitant]
  6. CIPROFLOXACIN [Concomitant]
  7. SALBUTAMOL [Concomitant]
  8. HYDROXYZINE [Concomitant]
  9. FLUOXETINE [Concomitant]
  10. BECLOMETHASONE DIPROPIONATE [Concomitant]
  11. VANCOMYCIN [Concomitant]
  12. METRONIDAZOLE [Concomitant]
  13. IPRATROPIUM BROMIDE [Concomitant]
  14. TIOTROPIUM BROMIDE [Concomitant]
  15. ACETAMINOPHEN [Concomitant]
  16. HYDROCORTISONE [Concomitant]
  17. METOCLOPRAMIDE [Concomitant]
  18. ERYTHROMYCIN [Concomitant]
  19. GENTAMICIN [Concomitant]
  20. ROPIVACAINE [Concomitant]
  21. ZOPICLONE [Concomitant]

REACTIONS (1)
  - METABOLIC ACIDOSIS [None]
